FAERS Safety Report 19417081 (Version 1)
Quarter: 2021Q2

REPORT INFORMATION
  Report Type: Spontaneous
  Country: FR (occurrence: FR)
  Receive Date: 20210614
  Receipt Date: 20210614
  Transmission Date: 20210717
  Serious: Yes (Death)
  Sender: FDA-Public Use
  Company Number: FR-BEH-2021132605

PATIENT
  Age: 84 Year
  Sex: Female

DRUGS (3)
  1. CONFIDEX [Suspect]
     Active Substance: COAGULATION FACTOR IX HUMAN\COAGULATION FACTOR VII HUMAN\COAGULATION FACTOR X HUMAN\PROTEIN C\PROTEIN S HUMAN\PROTHROMBIN
     Indication: HAEMORRHAGE
     Dosage: 4000 INTERNATIONAL UNIT, SINGLE
     Route: 042
     Dates: start: 20210501, end: 20210501
  2. CONFIDEX [Suspect]
     Active Substance: COAGULATION FACTOR IX HUMAN\COAGULATION FACTOR VII HUMAN\COAGULATION FACTOR X HUMAN\PROTEIN C\PROTEIN S HUMAN\PROTHROMBIN
     Indication: HAEMORRHAGE
     Dosage: 4000 INTERNATIONAL UNIT, SINGLE
     Route: 042
     Dates: start: 20210501, end: 20210501
  3. PRAXBIND [Concomitant]
     Active Substance: IDARUCIZUMAB
     Indication: PROCOAGULANT THERAPY
     Dosage: NOT ADMINISTERED
     Dates: start: 20210501, end: 20210501

REACTIONS (3)
  - Product prescribing error [Fatal]
  - Shock haemorrhagic [Fatal]
  - Drug ineffective [Fatal]

NARRATIVE: CASE EVENT DATE: 20210501
